FAERS Safety Report 7232826-3 (Version None)
Quarter: 2011Q1

REPORT INFORMATION
  Report Type: 
  Country: None (occurrence: None)
  Receive Date: 20110110
  Receipt Date: 20101229
  Transmission Date: 20110831
  Serious: Yes (Death, Hospitalization, Other)
  Sender: FDA-Public Use
  Company Number: 85732-2

PATIENT
  Age: 45 Year
  Sex: Male
  Weight: 85 kg

DRUGS (1)
  1. ETOPOSIDE [Suspect]
     Indication: PRODUCT USED FOR UNKNOWN INDICATION
     Dosage: 50MG
     Dates: start: 20090626, end: 20101002

REACTIONS (9)
  - DYSPNOEA [None]
  - LEUKOPENIA [None]
  - NEOPLASM PROGRESSION [None]
  - LARYNGITIS [None]
  - NAUSEA [None]
  - NEUTROPENIA [None]
  - VOMITING [None]
  - THROMBOPHLEBITIS [None]
  - OESOPHAGITIS [None]
